FAERS Safety Report 9972206 (Version 1)
Quarter: 2014Q1

REPORT INFORMATION
  Report Type: Spontaneous
  Country: IT (occurrence: None)
  Receive Date: 20140304
  Receipt Date: 20140304
  Transmission Date: 20141002
  Serious: Yes (Other)
  Sender: FDA-Public Use
  Company Number: NSR_01523_2014

PATIENT
  Age: 80 Year
  Sex: Female

DRUGS (1)
  1. ALLOPURINOL [Suspect]
     Indication: PRODUCT USED FOR UNKNOWN INDICATION
     Dosage: DF

REACTIONS (1)
  - Subacute cutaneous lupus erythematosus [None]
